FAERS Safety Report 9648590 (Version 1)
Quarter: 2013Q4

REPORT INFORMATION
  Report Type: Spontaneous
  Country: US (occurrence: None)
  Receive Date: 20131025
  Receipt Date: 20131025
  Transmission Date: 20140711
  Serious: Yes (Life-Threatening)
  Sender: FDA-Public Use
  Company Number: None

PATIENT
  Age: 56 Year
  Sex: Male
  Weight: 131.09 kg

DRUGS (1)
  1. METFORMIN [Suspect]
     Dosage: 1 PILL
     Route: 048
     Dates: start: 20131017, end: 20131022

REACTIONS (7)
  - Abdominal pain upper [None]
  - Diarrhoea [None]
  - Myalgia [None]
  - Blood glucose increased [None]
  - Asthenia [None]
  - Fatigue [None]
  - Dyspnoea [None]
